FAERS Safety Report 7385864-4 (Version None)
Quarter: 2011Q1

REPORT INFORMATION
  Report Type: 
  Country: None (occurrence: None)
  Receive Date: 20110331
  Receipt Date: 20110328
  Transmission Date: 20110831
  Serious: No
  Sender: FDA-Public Use
  Company Number: US-PFIZER INC-2011068939

PATIENT
  Sex: Female
  Weight: 84.8 kg

DRUGS (1)
  1. ALAVERT [Suspect]
     Indication: SINUS DISORDER
     Dosage: 120 MG, DAILY
     Dates: start: 20110324

REACTIONS (2)
  - SOMNOLENCE [None]
  - FATIGUE [None]
